FAERS Safety Report 21944600 (Version 1)
Quarter: 2023Q1

REPORT INFORMATION
  Report Type: Spontaneous
  Country: US (occurrence: None)
  Receive Date: 20230201
  Receipt Date: 20230201
  Transmission Date: 20230418
  Serious: No
  Sender: FDA-Public Use
  Company Number: None

PATIENT
  Age: 61 Year
  Sex: Female
  Weight: 72.62 kg

DRUGS (16)
  1. IBRANCE [Suspect]
     Active Substance: PALBOCICLIB
     Indication: Breast cancer female
     Dosage: OTHER FREQUENCY : 21DON7DOFF;?
     Route: 048
  2. AMBIEN [Concomitant]
  3. AZELASTINE [Concomitant]
  4. CALCIUM [Concomitant]
  5. CARAFATE [Concomitant]
  6. FUROSEMIDE [Concomitant]
     Active Substance: FUROSEMIDE
  7. GABAPENTIN [Concomitant]
  8. IBUPROFEN [Concomitant]
  9. METHYLPRENISOLONE [Concomitant]
  10. NORCO [Concomitant]
  11. OMEPRAZOLE [Concomitant]
  12. PROPRANOLOL [Concomitant]
  13. ROBAXIN [Concomitant]
  14. TRAMADOL [Concomitant]
  15. VITAMIN D [Concomitant]
  16. ZOLEDRONIC ACID [Concomitant]

REACTIONS (2)
  - Pneumonia [None]
  - Therapy interrupted [None]
